FAERS Safety Report 15075060 (Version 1)
Quarter: 2018Q2

REPORT INFORMATION
  Report Type: Spontaneous
  Country: US (occurrence: US)
  Receive Date: 20180627
  Receipt Date: 20180627
  Transmission Date: 20180711
  Serious: Yes (Other)
  Sender: FDA-Public Use
  Company Number: US-SAOL THERAPEUTICS-2017SAO01744

PATIENT
  Age: 56 Year
  Sex: Male
  Weight: 91 kg

DRUGS (13)
  1. DILAUDID [Suspect]
     Active Substance: HYDROMORPHONE HYDROCHLORIDE
     Dosage: 710 ?G, \DAY
     Route: 037
  2. OXYCODONE [Concomitant]
     Active Substance: OXYCODONE
  3. BACLOFEN. [Concomitant]
     Active Substance: BACLOFEN
     Route: 048
  4. ZANAFLEX [Concomitant]
     Active Substance: TIZANIDINE HYDROCHLORIDE
  5. BACLOFEN. [Suspect]
     Active Substance: BACLOFEN
     Dosage: 133 ?G, \DAY
     Route: 037
  6. KLONOPIN [Concomitant]
     Active Substance: CLONAZEPAM
  7. LUNESTA [Concomitant]
     Active Substance: ESZOPICLONE
  8. FLONASE [Concomitant]
     Active Substance: FLUTICASONE PROPIONATE
  9. ZESTRIL [Concomitant]
     Active Substance: LISINOPRIL
  10. AMBIEN [Concomitant]
     Active Substance: ZOLPIDEM TARTRATE
  11. PRILOSEC [Concomitant]
     Active Substance: OMEPRAZOLE MAGNESIUM
  12. NEURONTIN [Concomitant]
     Active Substance: GABAPENTIN
  13. REMERON [Concomitant]
     Active Substance: MIRTAZAPINE

REACTIONS (4)
  - Yawning [Recovered/Resolved]
  - Device malfunction [Recovered/Resolved]
  - Complication associated with device [Unknown]
  - Drug withdrawal syndrome [Recovered/Resolved]

NARRATIVE: CASE EVENT DATE: 20171102
